FAERS Safety Report 5788029-2 (Version None)
Quarter: 2008Q2

REPORT INFORMATION
  Report Type: 
  Country: None (occurrence: None)
  Receive Date: 20080625
  Receipt Date: 20080618
  Transmission Date: 20081010
  Serious: Yes (Life-Threatening, Hospitalization)
  Sender: FDA-Public Use
  Company Number: MX-ELI_LILLY_AND_COMPANY-MX200806004257

PATIENT
  Age: 78 Year
  Sex: Male
  Weight: 80 kg

DRUGS (7)
  1. CYMBALTA [Suspect]
     Indication: DEPRESSION
     Dosage: 30 MG, UNK
     Route: 065
     Dates: start: 20080617
  2. ZYPREXA [Suspect]
     Indication: SLEEP DISORDER
     Dosage: 10 MG, UNKNOWN
     Route: 060
     Dates: start: 20080617
  3. CEPHALEXIN [Concomitant]
     Dosage: UNK, UNKNOWN
     Route: 065
  4. MICARDIS [Concomitant]
     Dosage: UNK, UNKNOWN
     Route: 065
  5. DIFLUCAN [Concomitant]
     Indication: ANTIBIOTIC THERAPY
     Dosage: UNK, UNKNOWN
     Route: 065
  6. CLEXANE [Concomitant]
     Indication: ANTICOAGULANT THERAPY
     Dosage: UNK, UNKNOWN
     Route: 065
  7. NORVASC [Concomitant]
     Dosage: UNK, UNKNOWN
     Route: 065

REACTIONS (1)
  - RESPIRATORY ARREST [None]
